FAERS Safety Report 14867764 (Version 3)
Quarter: 2018Q2

REPORT INFORMATION
  Report Type: Report from Study
  Country: CR (occurrence: CR)
  Receive Date: 20180509
  Receipt Date: 20180516
  Transmission Date: 20180711
  Serious: Yes (Other)
  Sender: FDA-Public Use
  Company Number: PHHY2016CR063389

PATIENT
  Age: 46 Year
  Sex: Female
  Weight: 71 kg

DRUGS (9)
  1. SANDOSTATIN LAR DEPOT [Suspect]
     Active Substance: OCTREOTIDE ACETATE
     Indication: ACROMEGALY
     Dosage: 40 MG, QMO
     Route: 065
  2. SANDOSTATIN LAR DEPOT [Suspect]
     Active Substance: OCTREOTIDE ACETATE
     Indication: PITUITARY TUMOUR BENIGN
  3. HYDROCHLOROTHIAZIDE. [Concomitant]
     Active Substance: HYDROCHLOROTHIAZIDE
     Indication: HYPERTENSION
     Route: 065
  4. AXIS [Concomitant]
     Indication: ASTHMA
     Route: 065
  5. LORATADIN [Concomitant]
     Active Substance: LORATADINE
     Indication: ASTHMA
     Route: 065
  6. MONTELUKAST [Suspect]
     Active Substance: MONTELUKAST SODIUM
     Indication: ASTHMA
     Route: 065
  7. IRBESARTAN. [Suspect]
     Active Substance: IRBESARTAN
     Indication: HYPERTENSION
     Route: 065
  8. IBUPROFEN. [Concomitant]
     Active Substance: IBUPROFEN
     Indication: HEADACHE
     Route: 065
  9. BECLOMETHASONE [Concomitant]
     Active Substance: BECLOMETHASONE
     Indication: ASTHMA
     Route: 065

REACTIONS (21)
  - Injection site pain [Recovered/Resolved]
  - Metrorrhagia [Unknown]
  - Ovarian cyst [Unknown]
  - Arthropathy [Unknown]
  - Strangulated hernia [Recovering/Resolving]
  - Hiatus hernia [Unknown]
  - Splenomegaly [Unknown]
  - Dysmenorrhoea [Unknown]
  - Vertigo [Unknown]
  - Headache [Unknown]
  - Alopecia [Unknown]
  - Pain [Unknown]
  - Injection site haematoma [Unknown]
  - Uterine leiomyoma [Unknown]
  - Haematochezia [Unknown]
  - Injection site discolouration [Recovered/Resolved]
  - Fatigue [Unknown]
  - Bone pain [Unknown]
  - Thyroid function test abnormal [Unknown]
  - Dizziness [Unknown]
  - Weight fluctuation [Unknown]
